FAERS Safety Report 4406515-4 (Version None)
Quarter: 2004Q3

REPORT INFORMATION
  Report Type: 
  Country: None (occurrence: None)
  Receive Date: 20040716
  Receipt Date: 20040714
  Transmission Date: 20050211
  Serious: Yes (Death)
  Sender: FDA-Public Use
  Company Number: 200410355BYL

PATIENT
  Age: 75 Year
  Sex: Male
  Weight: 50 kg

DRUGS (11)
  1. ASPIRIN [Suspect]
     Indication: THROMBOTIC STROKE
     Dosage: 100 MG, QD, ORAL
     Route: 048
     Dates: start: 20040606, end: 20040607
  2. CATACLOT (OZAGREL SODIUM) [Suspect]
     Indication: THROMBOTIC STROKE
     Dosage: 80 MG, BID, INTRAVENOUS DRIP
     Route: 042
     Dates: start: 20040526, end: 20040607
  3. MEXITIL [Suspect]
     Indication: ARRHYTHMIA
     Dosage: 100 MG , BID, ORAL
     Route: 048
     Dates: start: 20040426, end: 20040607
  4. HALCION [Suspect]
     Indication: INSOMNIA
     Dosage: 0.125 MG, QD, ORAL
     Route: 048
     Dates: start: 20040426, end: 20040606
  5. SODOLON (SOFALCONE) [Suspect]
     Indication: GASTRITIS
     Dosage: 100 MG, TID, ORAL
     Route: 048
     Dates: start: 20040426, end: 20040607
  6. DAI-KENCHU-TO [Suspect]
     Indication: CONSTIPATION
     Dosage: 2.5 G, TID, ORAL
     Route: 048
     Dates: start: 20040421, end: 20040607
  7. CEROCRAL (IFENPRODIL TARTRATE) [Suspect]
     Indication: THROMBOTIC STROKE
     Dosage: 20 MG, TID, ORAL
     Route: 048
     Dates: start: 20040605, end: 20040607
  8. SENNOSIDE [Concomitant]
  9. MERISLON [Concomitant]
  10. TRAVELMIN [Concomitant]
  11. ALDACTONE-A [Concomitant]

REACTIONS (2)
  - ABNORMAL BEHAVIOUR [None]
  - HEPATITIS FULMINANT [None]
